FAERS Safety Report 10184358 (Version 1)
Quarter: 2014Q2

REPORT INFORMATION
  Report Type: Report from Study
  Country: US (occurrence: US)
  Receive Date: 20140520
  Receipt Date: 20140520
  Transmission Date: 20141212
  Serious: Yes (Hospitalization, Other)
  Sender: FDA-Public Use
  Company Number: US-ABBVIE-14P-163-1237309-00

PATIENT
  Sex: Female
  Weight: 56.75 kg

DRUGS (2)
  1. HUMIRA [Suspect]
     Indication: RHEUMATOID ARTHRITIS
     Route: 058
     Dates: start: 2010, end: 2013
  2. DIOVAN [Concomitant]
     Indication: HYPERTENSION

REACTIONS (4)
  - Gait disturbance [Recovered/Resolved]
  - Tendon rupture [Recovered/Resolved]
  - Abdominal pain [Recovering/Resolving]
  - Cholelithiasis [Recovered/Resolved]
